FAERS Safety Report 5540643-5 (Version None)
Quarter: 2007Q4

REPORT INFORMATION
  Report Type: 
  Country: None (occurrence: None)
  Receive Date: 20071129
  Receipt Date: 20070618
  Transmission Date: 20080405
  Serious: Yes (Hospitalization, Other)
  Sender: FDA-Public Use
  Company Number: US200706003889

PATIENT
  Age: 43 Year
  Sex: Male

DRUGS (1)
  1. ZYPREXA [Suspect]
     Indication: DEPRESSION
     Dosage: 10 MG, DAILY (1/D), ORAL
     Route: 048

REACTIONS (3)
  - CONDITION AGGRAVATED [None]
  - PAIN [None]
  - PANCREATITIS [None]
